FAERS Safety Report 11639826 (Version 3)
Quarter: 2016Q1

REPORT INFORMATION
  Report Type: Report from Study
  Country: JP (occurrence: JP)
  Receive Date: 20151019
  Receipt Date: 20160108
  Transmission Date: 20160525
  Serious: Yes (Hospitalization)
  Sender: FDA-Public Use
  Company Number: JP-EISAI MEDICAL RESEARCH-EC-2015-011200

PATIENT
  Age: 69 Year
  Sex: Male
  Weight: 51 kg

DRUGS (13)
  1. CLEANAL [Concomitant]
     Active Substance: FUDOSTEINE
  2. LENVIMA [Suspect]
     Active Substance: LENVATINIB
     Indication: MEDULLARY THYROID CANCER
     Route: 048
     Dates: start: 20150728, end: 20150906
  3. ROCALTROL [Concomitant]
     Active Substance: CALCITRIOL
  4. SLOW-K [Concomitant]
     Active Substance: POTASSIUM CHLORIDE
  5. SYMBICORT [Concomitant]
     Active Substance: BUDESONIDE\FORMOTEROL FUMARATE DIHYDRATE
  6. LENVIMA [Suspect]
     Active Substance: LENVATINIB
     Route: 048
     Dates: start: 20151216
  7. LENVIMA [Suspect]
     Active Substance: LENVATINIB
     Route: 048
     Dates: start: 20150917, end: 20151004
  8. THYRADIN S [Concomitant]
     Active Substance: LEVOTHYROXINE SODIUM
  9. MUCOSOLVAN L [Concomitant]
     Active Substance: AMBROXOL HYDROCHLORIDE
  10. TRAMCET [Concomitant]
     Active Substance: ACETAMINOPHEN\TRAMADOL
  11. LENVIMA [Suspect]
     Active Substance: LENVATINIB
     Route: 048
     Dates: start: 20150907, end: 20150916
  12. REBAMIPIDE [Concomitant]
     Active Substance: REBAMIPIDE
  13. MAGLAX [Concomitant]
     Active Substance: MAGNESIUM OXIDE

REACTIONS (2)
  - Cholecystitis acute [Recovered/Resolved]
  - Diarrhoea [Recovered/Resolved]

NARRATIVE: CASE EVENT DATE: 20151005
